FAERS Safety Report 26012305 (Version 1)
Quarter: 2025Q4

REPORT INFORMATION
  Report Type: Spontaneous
  Country: US (occurrence: US)
  Receive Date: 20251107
  Receipt Date: 20251107
  Transmission Date: 20260118
  Serious: No
  Sender: INCYTE
  Company Number: US-EVENT-004791

PATIENT
  Age: 7 Year
  Weight: 27.67 kg

DRUGS (3)
  1. NIKTIMVO [Suspect]
     Active Substance: AXATILIMAB-CSFR
     Indication: Chronic graft versus host disease
     Dosage: UNK
     Route: 065
  2. JAKAFI [Suspect]
     Active Substance: RUXOLITINIB
     Indication: Chronic graft versus host disease
     Dosage: UNK
     Route: 065
  3. UNSPECIFIED INGREDIENT [Concomitant]
     Active Substance: UNSPECIFIED INGREDIENT
     Indication: Chronic graft versus host disease
     Dosage: UNK
     Route: 065

REACTIONS (2)
  - Weight fluctuation [Unknown]
  - Off label use [Unknown]
